FAERS Safety Report 13782897 (Version 2)
Quarter: 2017Q3

REPORT INFORMATION
  Report Type: Spontaneous
  Country: US (occurrence: US)
  Receive Date: 20170724
  Receipt Date: 20170803
  Transmission Date: 20171127
  Serious: Yes (Other)
  Sender: FDA-Public Use
  Company Number: US-009507513-1707USA008918

PATIENT
  Sex: Female

DRUGS (2)
  1. KEYTRUDA [Suspect]
     Active Substance: PEMBROLIZUMAB
     Dosage: UNK UNK, CYCLICAL
     Route: 042
  2. KEYTRUDA [Suspect]
     Active Substance: PEMBROLIZUMAB
     Indication: COLON CANCER
     Dosage: UNK, CYCLICAL
     Route: 042

REACTIONS (3)
  - Polymyalgia rheumatica [Recovered/Resolved]
  - Gallbladder disorder [Unknown]
  - Product use in unapproved indication [Unknown]
